FAERS Safety Report 4373162-2 (Version None)
Quarter: 2004Q2

REPORT INFORMATION
  Report Type: 
  Country: None (occurrence: None)
  Receive Date: 20040603
  Receipt Date: 20040519
  Transmission Date: 20050107
  Serious: Yes (Hospitalization)
  Sender: FDA-Public Use
  Company Number: T04-USA-02228-01

PATIENT
  Age: 35 Year
  Sex: Female
  Weight: 101.1521 kg

DRUGS (3)
  1. ESCITALOPRAM (OPEN LABEL) (ESCITALOPRAM) [Suspect]
     Indication: POST-TRAUMATIC STRESS DISORDER
     Dates: end: 20040517
  2. FENTANYL [Suspect]
     Indication: ANAESTHESIA
     Dates: start: 20040518, end: 20040518
  3. ISOFLURANE [Suspect]
     Indication: ANAESTHESIA
     Dates: start: 20040518, end: 20040518

REACTIONS (4)
  - ANAESTHETIC COMPLICATION [None]
  - GRAND MAL CONVULSION [None]
  - HEMIPLEGIA TRANSIENT [None]
  - POST PROCEDURAL COMPLICATION [None]
